FAERS Safety Report 6580414-4 (Version None)
Quarter: 2010Q1

REPORT INFORMATION
  Report Type: 
  Country: None (occurrence: None)
  Receive Date: 20100212
  Receipt Date: 20100204
  Transmission Date: 20100710
  Serious: Yes (Hospitalization, Other)
  Sender: FDA-Public Use
  Company Number: PHEH2010US02105

PATIENT
  Sex: Female

DRUGS (1)
  1. FAMVIR [Suspect]

REACTIONS (1)
  - MENINGITIS VIRAL [None]
